FAERS Safety Report 20908805 (Version 1)
Quarter: 2022Q2

REPORT INFORMATION
  Report Type: Spontaneous
  Country: FR (occurrence: FR)
  Receive Date: 20220603
  Receipt Date: 20220603
  Transmission Date: 20220721
  Serious: Yes (Hospitalization)
  Sender: FDA-Public Use
  Company Number: None

PATIENT
  Age: 65 Year
  Sex: Male
  Weight: 82 kg

DRUGS (7)
  1. LIPTRUZET [Suspect]
     Active Substance: ATORVASTATIN CALCIUM\EZETIMIBE
     Indication: Product used for unknown indication
     Dosage: 1 DOSAGE FORM, QD, FILM-COATED TABLET.
     Route: 048
     Dates: start: 2021, end: 20220424
  2. PIROXICAM BETADEX [Suspect]
     Active Substance: PIROXICAM BETADEX
     Indication: Product used for unknown indication
     Dosage: UNK
     Route: 048
     Dates: start: 20220416, end: 20220424
  3. RAMIPRIL [Suspect]
     Active Substance: RAMIPRIL
     Indication: Product used for unknown indication
     Dosage: 1 DOSAGE FORM, QD
     Route: 048
     Dates: start: 20210227, end: 20220424
  4. PLAVIX [Suspect]
     Active Substance: CLOPIDOGREL BISULFATE
     Indication: Stent placement
     Dosage: 1 DOSAGE FORM, QD
     Route: 048
     Dates: start: 20220329, end: 20220424
  5. BISOPROLOL FUMARATE [Concomitant]
     Active Substance: BISOPROLOL FUMARATE
     Dosage: UNK
  6. ACETAMINOPHEN [Concomitant]
     Active Substance: ACETAMINOPHEN
     Dosage: UNK
  7. TIOTROPIUM [Concomitant]
     Active Substance: TIOTROPIUM
     Dosage: UNK

REACTIONS (1)
  - Subarachnoid haemorrhage [Recovering/Resolving]

NARRATIVE: CASE EVENT DATE: 20220424
